FAERS Safety Report 8694878 (Version 5)
Quarter: 2012Q4

REPORT INFORMATION
  Report Type: 
  Country: BR (occurrence: BR)
  Receive Date: 20120731
  Receipt Date: 20120829
  Transmission Date: 20130627
  Serious: Yes (Other)
  Sender: FDA-Public Use
  Company Number: PHHY2012BR043637

PATIENT
  Sex: Male

DRUGS (3)
  1. MYFORTIC [Suspect]
     Indication: IMMUNOSUPPRESSION
     Dosage: 360 mg, 4 tablet a day
     Route: 048
  2. CICLOSPORIN [Suspect]
     Dosage: UNK UKN, UNK
  3. PREDNISONE [Concomitant]
     Dosage: UNK UKN, UNK

REACTIONS (7)
  - Abdominal discomfort [Not Recovered/Not Resolved]
  - Nausea [Recovered/Resolved]
  - Dyspepsia [Not Recovered/Not Resolved]
  - Gastrointestinal motility disorder [Not Recovered/Not Resolved]
  - Gastrointestinal injury [Not Recovered/Not Resolved]
  - Depression [Unknown]
  - Memory impairment [Recovered/Resolved]
